FAERS Safety Report 4344669-9 (Version None)
Quarter: 2004Q2

REPORT INFORMATION
  Report Type: 
  Country: None (occurrence: None)
  Receive Date: 20040419
  Receipt Date: 20040408
  Transmission Date: 20050107
  Serious: Yes (Death)
  Sender: FDA-Public Use
  Company Number: JP-JNJFOC-20040402595

PATIENT
  Age: 76 Year
  Sex: Male

DRUGS (15)
  1. DURAGESIC [Suspect]
     Indication: CANCER PAIN
     Dosage: 2.5 MG , 1 IN 3 DAY, TRANSDERMAL
     Route: 062
     Dates: start: 20030821, end: 20031108
  2. LOXOPROFEN SODIUM [Concomitant]
  3. AGENTS FOR PEPTIC ULCER  (DRUGS FOR TREATMENT OF PEPTIC ULCER) [Concomitant]
  4. ZOLPIDEM TARTRATE [Concomitant]
  5. CERNITIN POLLEN EXTRACT (CERNILTON) [Concomitant]
  6. TAMSULOSIN HYDROCHLORIDE [Concomitant]
  7. DISTIGMINE BROMIDE [Concomitant]
  8. FUDOSTEINE (ALL OTHER THERAPEUTIC PRODUCTS) [Concomitant]
  9. CARBAZOCHROME SODIUM SULFONATE [Concomitant]
  10. TRANEXAMIC ACID [Concomitant]
  11. MORPHINE HYDROCHLORIDE [Concomitant]
  12. MORPHINE SULFATE [Concomitant]
  13. DOMPERIDONE [Concomitant]
  14. GRANISETRON HYDROCHLORIDE [Concomitant]
  15. GEMCITABINE HYDROCHLORIDE [Concomitant]

REACTIONS (2)
  - LUNG NEOPLASM MALIGNANT [None]
  - MALIGNANT NEOPLASM PROGRESSION [None]
